FAERS Safety Report 7549396-2 (Version None)
Quarter: 2011Q2

REPORT INFORMATION
  Report Type: 
  Country: None (occurrence: None)
  Receive Date: 20110615
  Receipt Date: 20110531
  Transmission Date: 20111010
  Serious: Yes (Hospitalization, Other)
  Sender: FDA-Public Use
  Company Number: US-BAYER-201030221NA

PATIENT
  Age: 19 Year
  Sex: Female
  Weight: 72.562 kg

DRUGS (6)
  1. HYDROCODONE BITARTRATE [Concomitant]
     Dosage: 500 MG, UNK
     Route: 048
     Dates: start: 20051103
  2. RANITIDINE [Concomitant]
     Dosage: 150 MG, BID
  3. YASMIN [Suspect]
     Indication: CONTRACEPTION
     Dosage: UNK
     Dates: start: 20070501, end: 20080301
  4. YASMIN [Suspect]
     Indication: PROPHYLAXIS
     Dosage: UNK
     Route: 048
     Dates: start: 20041001, end: 20060201
  5. PHENERGAN HCL [Concomitant]
     Dosage: 12.5 MG, UNK
     Route: 048
     Dates: start: 20051103
  6. PROTONIX [Concomitant]

REACTIONS (4)
  - GALLBLADDER INJURY [None]
  - CHOLECYSTITIS CHRONIC [None]
  - DEEP VEIN THROMBOSIS [None]
  - GALLBLADDER NON-FUNCTIONING [None]
